FAERS Safety Report 7646831-6 (Version None)
Quarter: 2011Q3

REPORT INFORMATION
  Report Type: 
  Country: None (occurrence: None)
  Receive Date: 20110725
  Receipt Date: 20110711
  Transmission Date: 20111222
  Serious: Yes (Hospitalization)
  Sender: FDA-Public Use
  Company Number: 2011P1007703

PATIENT
  Age: 47 Year
  Sex: Female
  Weight: 70.3075 kg

DRUGS (11)
  1. NYSTATIN SWISH AND SWALLOW [Concomitant]
  2. NYSTATIN [Concomitant]
  3. CLOBETASOL STEROID CREAM [Concomitant]
  4. SYNTHROID [Concomitant]
  5. NYSTATIN [Concomitant]
  6. TRIAMCINOLONE [Concomitant]
  7. CALCIUM ACETATE [Concomitant]
  8. UNSPECIFIED ASTHMA MEDICATIONS [Concomitant]
  9. VANOS [Suspect]
     Indication: RASH
     Dosage: ; PRN;TOP
     Route: 061
     Dates: start: 20101201, end: 20110710
  10. VITAMIN D [Concomitant]
  11. UNSPECIFIED STEROID OINTMENTS [Concomitant]

REACTIONS (8)
  - VIRAL INFECTION [None]
  - SYNCOPE [None]
  - APPLICATION SITE PRURITUS [None]
  - ORAL PAIN [None]
  - VOMITING [None]
  - PRODUCT PHYSICAL ISSUE [None]
  - OROPHARYNGEAL PAIN [None]
  - PRODUCT COLOUR ISSUE [None]
